FAERS Safety Report 13386904 (Version 1)
Quarter: 2017Q1

REPORT INFORMATION
  Report Type: Spontaneous
  Country: US (occurrence: US)
  Receive Date: 20170330
  Receipt Date: 20170330
  Transmission Date: 20170429
  Serious: No
  Sender: FDA-Public Use
  Company Number: US-B.I. PHARMACEUTICALS,INC./RIDGEFIELD-2017-BI-017899

PATIENT
  Age: 75 Year
  Sex: Female

DRUGS (1)
  1. COMBIVENT [Suspect]
     Active Substance: ALBUTEROL SULFATE\IPRATROPIUM BROMIDE
     Indication: CHRONIC OBSTRUCTIVE PULMONARY DISEASE
     Dosage: 2 PUFFS QID;  FORM STRENGTH: 20 MCG / 100 MCG; FORMULATION: INHALATION SPRAY? ADMINISTRATION CORRECT
     Route: 055
     Dates: start: 2011

REACTIONS (4)
  - Oropharyngeal pain [Not Recovered/Not Resolved]
  - Inappropriate schedule of drug administration [Not Recovered/Not Resolved]
  - Ear pain [Not Recovered/Not Resolved]
  - Drug ineffective [Not Recovered/Not Resolved]

NARRATIVE: CASE EVENT DATE: 2011
